FAERS Safety Report 5164136-2 (Version None)
Quarter: 2006Q4

REPORT INFORMATION
  Report Type: 
  Country: None (occurrence: None)
  Receive Date: 20061124
  Receipt Date: 20061117
  Transmission Date: 20070319
  Serious: No
  Sender: FDA-Public Use
  Company Number: 2006-05872

PATIENT
  Age: 41 Year
  Sex: Female

DRUGS (1)
  1. NOVAREL [Suspect]
     Indication: OVARIAN HYPERSTIMULATION SYNDROME
     Dosage: 5000 IU, SINGLE, DAY 13 OF CYCLE, INTRAMUSCULAR
     Route: 030
     Dates: start: 20060101, end: 20060101

REACTIONS (1)
  - OVARIAN TORSION [None]
